FAERS Safety Report 5404265-9 (Version None)
Quarter: 2007Q3

REPORT INFORMATION
  Report Type: 
  Country: None (occurrence: None)
  Receive Date: 20070731
  Receipt Date: 20070716
  Transmission Date: 20080115
  Serious: Yes (Hospitalization)
  Sender: FDA-Public Use
  Company Number: 2007001306

PATIENT
  Age: 71 Year
  Sex: Female
  Weight: 82.1 kg

DRUGS (6)
  1. ERLOTINIB TABLET) (ERLOTINIB HCL)  ESOPHAGEAL CANCER [Suspect]
     Indication: OESOPHAGEAL CARCINOMA
     Dosage: 100 MG
     Dates: start: 20070702
  2. BEVACIZUMAB (INJECTION FOR INFUSION) [Suspect]
     Indication: OESOPHAGEAL CARCINOMA
     Dosage: 15 MG/KG, INTRAVENOUS
     Route: 042
     Dates: start: 20070702
  3. PACLITAXEL [Suspect]
     Indication: OESOPHAGEAL CARCINOMA
     Dosage: 20 MG/MM2,INTRAVENOUS
  4. CARBOPLATIN [Suspect]
     Indication: OESOPHAGEAL CARCINOMA
     Dosage: 604 MG, INTRAVENOUS
     Route: 042
  5. 5 FLOUROURACIL(FLUOROURACIL)(INJECTION FOR INFUSION) [Suspect]
     Dosage: 225 MG/MM2,INTRAVENOUS
     Route: 042
  6. RADIATION THERAPY [Suspect]
     Dosage: 1.5 GY SINGLE DOSE FRACTIONS

REACTIONS (11)
  - BLOOD CHLORIDE DECREASED [None]
  - BLOOD GLUCOSE INCREASED [None]
  - BLOOD SODIUM DECREASED [None]
  - DIARRHOEA [None]
  - LEUKOPENIA [None]
  - MUCOSAL INFLAMMATION [None]
  - NEUTROPHIL COUNT DECREASED [None]
  - PROTEIN TOTAL DECREASED [None]
  - PYREXIA [None]
  - THROMBOCYTOPENIA [None]
  - VOMITING [None]
